FAERS Safety Report 6635226-X (Version None)
Quarter: 2010Q1

REPORT INFORMATION
  Report Type: 
  Country: None (occurrence: None)
  Receive Date: 20100315
  Receipt Date: 20100305
  Transmission Date: 20100710
  Serious: Yes (Hospitalization)
  Sender: FDA-Public Use
  Company Number: GXKR2010FR02698

PATIENT
  Age: 54 Year
  Sex: Male

DRUGS (6)
  1. FLUOROURACIL [Suspect]
     Indication: COLON CANCER
     Dosage: 400 MG/M2
     Route: 040
  2. FLUOROURACIL [Suspect]
     Dosage: 2500 MG/M2
  3. FLUOROURACIL [Suspect]
     Dosage: REDUCED TO 300 MG/M2 BOLUSES ON DAY 1 + 2 EACH FOLLOWED BY 22-HR 500 MG/M2 INFUSIO
  4. FLUOROURACIL [Suspect]
     Dosage: DECREASED INITIAL DOSE (50%)
  5. FLUOROURACIL [Suspect]
     Dosage: TOTAL 19 CYCLES WITH OPTIMAL TARGET CONCENTRATION 600 UG/L; ACHIEVED WITH 40% STANDARD DOSE
  6. LEUCOVORIN CALCIUM [Concomitant]
     Indication: COLON CANCER

REACTIONS (5)
  - ASTHENIA [None]
  - DIARRHOEA [None]
  - FEBRILE NEUTROPENIA [None]
  - MUCOSAL INFLAMMATION [None]
  - PALMAR-PLANTAR ERYTHRODYSAESTHESIA SYNDROME [None]
